FAERS Safety Report 4866033-6 (Version None)
Quarter: 2005Q4

REPORT INFORMATION
  Report Type: 
  Country: None (occurrence: None)
  Receive Date: 20051221
  Receipt Date: 20051212
  Transmission Date: 20060501
  Serious: No
  Sender: FDA-Public Use
  Company Number: 2005-135821-NL

PATIENT
  Age: 37 Year
  Sex: Female

DRUGS (8)
  1. MIRTAZAPINE [Suspect]
     Dosage: ORAL
     Route: 048
  2. MIRTAZAPINE [Suspect]
     Dosage: ORAL
     Route: 048
  3. QUETIAPINE FUMARATE [Concomitant]
  4. TOPIRAMATE [Concomitant]
  5. CLONAZEPAM [Concomitant]
  6. BUPROPION HYDROCHLORIDE [Concomitant]
  7. ZOPICLONE [Concomitant]
  8. TRAZODONE [Concomitant]

REACTIONS (3)
  - CONDITION AGGRAVATED [None]
  - DEPRESSION [None]
  - SLEEP DISORDER [None]
